FAERS Safety Report 16405992 (Version 2)
Quarter: 2019Q2

REPORT INFORMATION
  Report Type: Spontaneous
  Country: US (occurrence: US)
  Receive Date: 20190607
  Receipt Date: 20190611
  Transmission Date: 20190711
  Serious: No
  Sender: FDA-Public Use
  Company Number: US-SHIRE-US201918329

PATIENT
  Age: 35 Year
  Sex: Female
  Weight: 83.9 kg

DRUGS (2)
  1. ERYTHROMYCIN. [Concomitant]
     Active Substance: ERYTHROMYCIN
     Indication: PRODUCT USED FOR UNKNOWN INDICATION
  2. XIIDRA [Suspect]
     Active Substance: LIFITEGRAST
     Indication: DRY EYE
     Dosage: 1 GTT DROPS IN BOTH EYES, 2X/DAY:BID
     Route: 047
     Dates: end: 20190603

REACTIONS (4)
  - Conjunctivitis [Recovered/Resolved]
  - Eye discharge [Unknown]
  - Eye pain [Unknown]
  - Product dose omission [Recovered/Resolved]

NARRATIVE: CASE EVENT DATE: 201905
